FAERS Safety Report 21657506 (Version 3)
Quarter: 2022Q4

REPORT INFORMATION
  Report Type: Report from Study
  Country: ZA (occurrence: ZA)
  Receive Date: 20221129
  Receipt Date: 20221219
  Transmission Date: 20230113
  Serious: Yes (Life-Threatening)
  Sender: FDA-Public Use
  Company Number: ZA-AstraZeneca-2022A387831

PATIENT
  Age: 53 Year
  Sex: Female
  Weight: 75 kg

DRUGS (8)
  1. FAM-TRASTUZUMAB DERUXTECAN-NXKI [Suspect]
     Active Substance: FAM-TRASTUZUMAB DERUXTECAN-NXKI
     Indication: HER2 positive breast cancer
     Dosage: 5.4 MG/KG, ONCE EVERY 3 WK
     Route: 042
     Dates: start: 20221026, end: 20221026
  2. FAM-TRASTUZUMAB DERUXTECAN-NXKI [Suspect]
     Active Substance: FAM-TRASTUZUMAB DERUXTECAN-NXKI
     Dosage: 320 MG/KG, ONCE EVERY 3 WK
     Route: 042
     Dates: start: 20221207, end: 20221207
  3. PERTUZUMAB [Suspect]
     Active Substance: PERTUZUMAB
     Indication: HER2 positive breast cancer
     Dosage: 840 MG, ONCE EVERY 3 WK
     Route: 042
     Dates: start: 20221026, end: 20221026
  4. INVESTIGATIONAL PRODUCT [Suspect]
     Active Substance: INVESTIGATIONAL PRODUCT
     Indication: HER2 positive breast cancer
     Dosage: BONE MARROW TOXICITY CAUSED BY IP
  5. TRAMADOL [Concomitant]
     Active Substance: TRAMADOL
     Indication: Tumour pain
     Dosage: 50 MG, AS NEEDED
     Route: 048
     Dates: start: 20220916
  6. ACETAMINOPHEN [Concomitant]
     Active Substance: ACETAMINOPHEN
     Indication: Tumour pain
     Dosage: 1 G, AS NEEDED
     Route: 048
     Dates: start: 20220916
  7. METRONIDAZOLE [Concomitant]
     Active Substance: METRONIDAZOLE
     Indication: Wound complication
     Dosage: 400 MG, QD
     Route: 061
     Dates: start: 20221108
  8. SLOW MAG [ASCORBIC ACID;MAGNESIUM CARBONATE] [Concomitant]
     Indication: Blood magnesium decreased
     Dosage: 2 DF, QD (2 TABLET DAILY)
     Route: 048
     Dates: start: 20221101

REACTIONS (1)
  - Neutropenia [Not Recovered/Not Resolved]

NARRATIVE: CASE EVENT DATE: 20221123
